FAERS Safety Report 7229164-1 (Version None)
Quarter: 2011Q1

REPORT INFORMATION
  Report Type: 
  Country: None (occurrence: None)
  Receive Date: 20110117
  Receipt Date: 20110110
  Transmission Date: 20110831
  Serious: Yes (Hospitalization, Other)
  Sender: FDA-Public Use
  Company Number: BR-PFIZER INC-2010118829

PATIENT
  Age: 57 Year
  Sex: Female
  Weight: 69 kg

DRUGS (7)
  1. CHAMPIX [Suspect]
     Dosage: 1 MG, 2X/DAY, EVERY 12 HOURS
     Route: 048
     Dates: start: 20100901
  2. CHAMPIX [Suspect]
     Indication: TOBACCO USER
     Dosage: UNK
     Route: 048
     Dates: start: 20100701
  3. PURAN T4 [Concomitant]
     Indication: THYROID DISORDER
     Dosage: 1 TABLET IN THE MORNING
  4. CHAMPIX [Suspect]
     Dosage: UNK
     Route: 048
     Dates: start: 20101101
  5. SERTRALINE [Concomitant]
     Indication: ANXIETY
     Dosage: UNK
     Dates: start: 20100701
  6. SIMVASTATIN [Concomitant]
     Indication: BLOOD CHOLESTEROL INCREASED
     Dosage: UNK
  7. CLONAZEPAM [Concomitant]
     Indication: SLEEP DISORDER
     Dosage: 2 MG, UNK
     Route: 048

REACTIONS (2)
  - ENTERITIS INFECTIOUS [None]
  - DIARRHOEA [None]
